FAERS Safety Report 10192740 (Version 1)
Quarter: 2014Q2

REPORT INFORMATION
  Report Type: Spontaneous
  Country: US (occurrence: US)
  Receive Date: 20140523
  Receipt Date: 20140523
  Transmission Date: 20141212
  Serious: Yes (Hospitalization)
  Sender: FDA-Public Use
  Company Number: US-BAYER-2014-072559

PATIENT
  Age: 70 Year
  Sex: Male
  Weight: 72 kg

DRUGS (6)
  1. BAYER GENUINE ASPIRIN ORIGINAL STRENGTH [Suspect]
     Indication: CARDIOVASCULAR EVENT PROPHYLAXIS
     Dosage: 325 MG, UNK
     Route: 048
     Dates: start: 2010, end: 20140401
  2. PLAVIX [Suspect]
     Indication: PERIPHERAL ARTERIAL OCCLUSIVE DISEASE
     Dosage: 75 MG, UNK
     Route: 048
     Dates: start: 2010, end: 20140401
  3. LISINOPRIL [Concomitant]
     Indication: HYPERTENSION
     Dosage: 10 MG, UNK
     Route: 048
     Dates: start: 2010
  4. ATORVASTATIN [Concomitant]
     Indication: HYPERCHOLESTEROLAEMIA
     Dosage: 40 MG, UNK
     Route: 048
     Dates: start: 2012
  5. TAMSULOSIN [Concomitant]
     Indication: BENIGN PROSTATIC HYPERPLASIA
     Route: 048
  6. ADVAIR [Concomitant]
     Indication: CHRONIC OBSTRUCTIVE PULMONARY DISEASE
     Route: 045

REACTIONS (12)
  - Anaemia [Recovered/Resolved]
  - Gastrointestinal haemorrhage [None]
  - Malaise [None]
  - Asthenia [None]
  - Dizziness [None]
  - Dehydration [None]
  - Occult blood positive [None]
  - Orthostatic hypotension [None]
  - Hypotension [None]
  - Haematochezia [None]
  - Atrial tachycardia [None]
  - Labelled drug-drug interaction medication error [None]
